FAERS Safety Report 9621505 (Version 1)
Quarter: 2013Q4

REPORT INFORMATION
  Report Type: Spontaneous
  Country: US (occurrence: None)
  Receive Date: 20131011
  Receipt Date: 20131011
  Transmission Date: 20140711
  Serious: No
  Sender: FDA-Public Use
  Company Number: None

PATIENT
  Age: 82 Year
  Sex: Male

DRUGS (1)
  1. XTANE 40 MG [Suspect]
     Indication: PROSTATE CANCER
     Dosage: 160MG QD PO

REACTIONS (3)
  - Tremor [None]
  - Pyrexia [None]
  - Fatigue [None]
